FAERS Safety Report 24232739 (Version 1)
Quarter: 2024Q3

REPORT INFORMATION
  Report Type: Spontaneous
  Country: US (occurrence: US)
  Receive Date: 20240821
  Receipt Date: 20240821
  Transmission Date: 20241017
  Serious: No
  Sender: BRISTOL MYERS SQUIBB
  Company Number: US-BRISTOL-MYERS SQUIBB COMPANY-2024-128764

PATIENT
  Age: 75 Year
  Sex: Male
  Weight: 95.25 kg

DRUGS (1)
  1. REVLIMID [Suspect]
     Active Substance: LENALIDOMIDE
     Indication: Plasma cell myeloma
     Dosage: DOSE : 10MG;     FREQ : 1 CAPSULE DAILY FOR 21 DAYS, OFF FOR 7 DAYS
     Route: 048
     Dates: start: 2023, end: 20240620

REACTIONS (2)
  - Protein total decreased [Unknown]
  - Rash [Unknown]

NARRATIVE: CASE EVENT DATE: 20240501
